FAERS Safety Report 6092122-7 (Version None)
Quarter: 2009Q1

REPORT INFORMATION
  Report Type: 
  Country: None (occurrence: None)
  Receive Date: 20090223
  Receipt Date: 20090223
  Transmission Date: 20090719
  Serious: No
  Sender: FDA-Public Use
  Company Number: None

PATIENT
  Sex: Female
  Weight: 50.8029 kg

DRUGS (1)
  1. MIRCETTE [Suspect]
     Indication: DYSMENORRHOEA
     Dosage: 28 DAY PKG.
     Dates: start: 20071201, end: 20080101

REACTIONS (3)
  - DRUG INEFFECTIVE [None]
  - IRRITABILITY [None]
  - MALAISE [None]
